FAERS Safety Report 4317695-3 (Version None)
Quarter: 2004Q1

REPORT INFORMATION
  Report Type: 
  Country: None (occurrence: None)
  Receive Date: 20040315
  Receipt Date: 20040126
  Transmission Date: 20041129
  Serious: Yes (Hospitalization)
  Sender: FDA-Public Use
  Company Number: GB-ROCHE-357105

PATIENT
  Age: 19 Year
  Sex: Male
  Weight: 70 kg

DRUGS (2)
  1. ROACCUTANE [Suspect]
     Indication: ACNE
     Route: 048
     Dates: start: 20031020, end: 20031215
  2. ROACCUTANE [Suspect]
     Route: 048
     Dates: start: 20040106, end: 20040113

REACTIONS (1)
  - ACNE CONGLOBATA [None]
